FAERS Safety Report 6817419-1 (Version None)
Quarter: 2010Q3

REPORT INFORMATION
  Report Type: 
  Country: None (occurrence: None)
  Receive Date: 20100706
  Receipt Date: 20100629
  Transmission Date: 20110219
  Serious: Yes (Other)
  Sender: FDA-Public Use
  Company Number: A0867637A

PATIENT
  Sex: Male

DRUGS (14)
  1. ADVAIR DISKUS 100/50 [Suspect]
     Indication: ASTHMA
     Dosage: 1PUFF TWICE PER DAY
     Route: 055
     Dates: start: 20060101
  2. SPIRIVA [Concomitant]
  3. OXYGEN [Concomitant]
  4. FORTICAL [Concomitant]
  5. ALBUTEROL [Concomitant]
  6. FUROSEMIDE [Concomitant]
  7. ATENOLOL [Concomitant]
  8. POTASSIUM CHLORIDE [Concomitant]
  9. PREDNISONE TAB [Concomitant]
  10. MUCINEX [Concomitant]
  11. TRAVATAN [Concomitant]
  12. DOXYCYCLINE [Concomitant]
  13. ERY-TAB [Concomitant]
  14. CEFADROXIL [Concomitant]

REACTIONS (2)
  - APHASIA [None]
  - VOCAL CORD DISORDER [None]
